FAERS Safety Report 6809862-1 (Version None)
Quarter: 2010Q2

REPORT INFORMATION
  Report Type: 
  Country: None (occurrence: None)
  Receive Date: 20100630
  Receipt Date: 20100629
  Transmission Date: 20101027
  Serious: Yes (Disabling)
  Sender: FDA-Public Use
  Company Number: B0662850A

PATIENT
  Age: 49 Year
  Sex: Female
  Weight: 73 kg

DRUGS (4)
  1. ALLI [Suspect]
     Indication: OBESITY
     Dosage: 3IUAX PER DAY
     Route: 048
     Dates: start: 20090301, end: 20090601
  2. FLUOXETINE [Suspect]
     Indication: DEPRESSION
     Dosage: 20MG PER DAY
     Route: 048
     Dates: start: 20000101
  3. PREMPAK-C [Suspect]
     Indication: MENOPAUSAL SYMPTOMS
     Dosage: 1IUAX PER DAY
     Route: 048
     Dates: start: 20060101
  4. MELOXICAM [Concomitant]
     Indication: ARTHRALGIA
     Dosage: 1IUAX PER DAY
     Route: 048
     Dates: start: 20090225, end: 20090325

REACTIONS (5)
  - CRYING [None]
  - DEPRESSED MOOD [None]
  - DEPRESSION [None]
  - HOT FLUSH [None]
  - MENOPAUSAL SYMPTOMS [None]
